FAERS Safety Report 12140865 (Version 1)
Quarter: 2016Q1

REPORT INFORMATION
  Report Type: Spontaneous
  Country: US (occurrence: US)
  Receive Date: 20160303
  Receipt Date: 20160303
  Transmission Date: 20160526
  Serious: No
  Sender: FDA-Public Use
  Company Number: US-ACTELION PHARMACEUTICALS US, INC.-A-US2016-131936

PATIENT
  Age: 56 Year
  Sex: Male

DRUGS (2)
  1. VELETRI [Suspect]
     Active Substance: EPOPROSTENOL
     Indication: PRODUCT USED FOR UNKNOWN INDICATION
     Dosage: UNK
     Route: 042
  2. AMBRISENTAN [Suspect]
     Active Substance: AMBRISENTAN
     Indication: PRODUCT USED FOR UNKNOWN INDICATION
     Dosage: 5 MG, QD
     Route: 048
     Dates: start: 20151102

REACTIONS (9)
  - Catheter site dryness [Unknown]
  - Catheter site inflammation [Unknown]
  - Catheter site erythema [Unknown]
  - Catheter site swelling [Unknown]
  - Catheter site discharge [Unknown]
  - Catheter site infection [Unknown]
  - Ear congestion [Unknown]
  - Catheter site rash [Unknown]
  - Nasal congestion [Unknown]
